FAERS Safety Report 6747653-0 (Version None)
Quarter: 2010Q2

REPORT INFORMATION
  Report Type: 
  Country: None (occurrence: None)
  Receive Date: 20100528
  Receipt Date: 20100104
  Transmission Date: 20101027
  Serious: Yes (Hospitalization)
  Sender: FDA-Public Use
  Company Number: NL-MEDIMMUNE-MEDI-0010084

PATIENT
  Sex: Male
  Weight: 6.89 kg

DRUGS (1)
  1. SYNAGIS [Suspect]
     Route: 030
     Dates: start: 20090911, end: 20091204

REACTIONS (5)
  - DYSPNOEA [None]
  - ERYTHEMA INFECTIOSUM [None]
  - HEART RATE INCREASED [None]
  - INFLUENZA [None]
  - NASOPHARYNGITIS [None]
